FAERS Safety Report 15659259 (Version 2)
Quarter: 2019Q1

REPORT INFORMATION
  Report Type: Spontaneous
  Country: IT (occurrence: IT)
  Receive Date: 20181127
  Receipt Date: 20190222
  Transmission Date: 20190417
  Serious: Yes (Hospitalization, Other)
  Sender: FDA-Public Use
  Company Number: IT-BRISTOL-MYERS SQUIBB COMPANY-BMS-2018-109559

PATIENT
  Sex: Female

DRUGS (2)
  1. ELIQUIS [Suspect]
     Active Substance: APIXABAN
     Indication: CEREBROVASCULAR ACCIDENT PROPHYLAXIS
     Dosage: 2.5 MG, BID
     Route: 048
  2. DIGITALIS [Concomitant]
     Active Substance: DIGITALIS
     Indication: PRODUCT USED FOR UNKNOWN INDICATION
     Dosage: UNK
     Route: 065

REACTIONS (4)
  - Glomerular filtration rate abnormal [Unknown]
  - Anaemia [Recovered/Resolved]
  - Gastrointestinal haemorrhage [Recovered/Resolved]
  - Gastritis erosive [Recovered/Resolved]
